FAERS Safety Report 6152796-9 (Version None)
Quarter: 2009Q2

REPORT INFORMATION
  Report Type: 
  Country: None (occurrence: None)
  Receive Date: 20090409
  Receipt Date: 20090330
  Transmission Date: 20091009
  Serious: Yes (Other)
  Sender: FDA-Public Use
  Company Number: 09-000119

PATIENT
  Sex: Female

DRUGS (1)
  1. DORYX [Suspect]
     Indication: SKIN INFECTION
     Dosage: 100 MG, ORAL
     Route: 048
     Dates: start: 20090101, end: 20090201

REACTIONS (8)
  - BONE PAIN [None]
  - CONDITION AGGRAVATED [None]
  - FIBROMYALGIA [None]
  - HEADACHE [None]
  - OROPHARYNGEAL PAIN [None]
  - PAIN IN JAW [None]
  - TOOTHACHE [None]
  - UPPER RESPIRATORY TRACT INFECTION [None]
